FAERS Safety Report 25772266 (Version 1)
Quarter: 2025Q3

REPORT INFORMATION
  Report Type: Spontaneous
  Country: JP (occurrence: JP)
  Receive Date: 20250908
  Receipt Date: 20250908
  Transmission Date: 20251020
  Serious: Yes (Hospitalization)
  Sender: CSL BEHRING
  Company Number: JP-BEH-2025217728

PATIENT
  Age: 82 Year
  Sex: Female

DRUGS (2)
  1. KORSUVA [Suspect]
     Active Substance: DIFELIKEFALIN ACETATE
     Indication: Pruritus
     Route: 042
     Dates: start: 20250610, end: 20250828
  2. MAXACALCITOL [Suspect]
     Active Substance: MAXACALCITOL
     Route: 065

REACTIONS (3)
  - Drug eruption [Recovering/Resolving]
  - Peripheral swelling [Unknown]
  - Neutrophil count increased [Unknown]

NARRATIVE: CASE EVENT DATE: 20250601
